FAERS Safety Report 8895413 (Version 1)
Quarter: 2012Q4

REPORT INFORMATION
  Report Type: 
  Country: PK (occurrence: PK)
  Receive Date: 20121108
  Receipt Date: 20121108
  Transmission Date: 20130627
  Serious: Yes (Death)
  Sender: FDA-Public Use
  Company Number: PK-SANOFI-AVENTIS-2012SA081504

PATIENT
  Age: 1 Day
  Sex: Male
  Weight: 3 kg

DRUGS (1)
  1. CLAFORAN [Suspect]
     Indication: CAESAREAN SECTION
     Route: 042
     Dates: start: 20121105, end: 20121106

REACTIONS (2)
  - Cyanosis [Fatal]
  - Dyspnoea [Fatal]
